FAERS Safety Report 15034131 (Version 1)
Quarter: 2018Q2

REPORT INFORMATION
  Report Type: Spontaneous
  Country: US (occurrence: US)
  Receive Date: 20180620
  Receipt Date: 20180620
  Transmission Date: 20180711
  Serious: No
  Sender: FDA-Public Use
  Company Number: US-TEVA-800870USA

PATIENT
  Sex: Female

DRUGS (2)
  1. LIDOCAINE. [Suspect]
     Active Substance: LIDOCAINE
     Indication: EXOSTOSIS
  2. LIDOCAINE. [Suspect]
     Active Substance: LIDOCAINE
     Indication: BACK PAIN
     Route: 065
     Dates: start: 2012

REACTIONS (2)
  - Musculoskeletal discomfort [Unknown]
  - Blister [Unknown]

NARRATIVE: CASE EVENT DATE: 20170816
